FAERS Safety Report 5765392-X (Version None)
Quarter: 2008Q2

REPORT INFORMATION
  Report Type: 
  Country: None (occurrence: None)
  Receive Date: 20080605
  Receipt Date: 20080521
  Transmission Date: 20081010
  Serious: Yes (Hospitalization)
  Sender: FDA-Public Use
  Company Number: M7001-00019-SPO-DE

PATIENT
  Age: 50 Year
  Sex: Male

DRUGS (3)
  1. TARGRETIN [Suspect]
     Indication: LYMPHOMA
     Dosage: 525 MG, ORAL
     Route: 048
  2. FENOFIBRATE [Suspect]
     Indication: PROPHYLAXIS
     Dosage: 250 MG,
  3. VORINOSTAT [Suspect]
     Indication: LYMPHOMA
     Dosage: 200 MG,

REACTIONS (15)
  - ACUTE FEBRILE NEUTROPHILIC DERMATOSIS [None]
  - ANAEMIA [None]
  - BLOOD LACTATE DEHYDROGENASE INCREASED [None]
  - CHILLS [None]
  - EOSINOPHIL COUNT DECREASED [None]
  - FATIGUE [None]
  - GRANULOMA [None]
  - LYMPHOCYTE COUNT DECREASED [None]
  - PYREXIA [None]
  - SCAB [None]
  - SUPERINFECTION BACTERIAL [None]
  - TUMOUR NECROSIS [None]
  - VASCULAR OCCLUSION [None]
  - WHITE BLOOD CELL COUNT INCREASED [None]
  - WOUND INFECTION STAPHYLOCOCCAL [None]
